FAERS Safety Report 4532288-0 (Version None)
Quarter: 2004Q4

REPORT INFORMATION
  Report Type: 
  Country: None (occurrence: None)
  Receive Date: 20041217
  Receipt Date: 20041201
  Transmission Date: 20050328
  Serious: Yes (Death)
  Sender: FDA-Public Use
  Company Number: 2004BI000715

PATIENT
  Age: 47 Year
  Sex: Female
  Weight: 122.4712 kg

DRUGS (1)
  1. AVONEX [Suspect]
     Indication: MULTIPLE SCLEROSIS
     Dosage: 30 UG; QW; IM
     Route: 030
     Dates: start: 20041120, end: 20041120

REACTIONS (1)
  - SUDDEN CARDIAC DEATH [None]
